FAERS Safety Report 22529415 (Version 1)
Quarter: 2023Q2

REPORT INFORMATION
  Report Type: Spontaneous
  Country: US (occurrence: US)
  Receive Date: 20230607
  Receipt Date: 20230607
  Transmission Date: 20230721
  Serious: Yes (Other)
  Sender: FDA-Public Use
  Company Number: US-AMGEN-USASP2023095613

PATIENT
  Age: 73 Year
  Sex: Male

DRUGS (1)
  1. BEVACIZUMAB [Suspect]
     Active Substance: BEVACIZUMAB
     Indication: Optic neuropathy
     Dosage: 5 MILLIGRAM/KG, Q2WK
     Route: 042

REACTIONS (3)
  - Visual impairment [Unknown]
  - Nephropathy [Unknown]
  - Off label use [Unknown]
